FAERS Safety Report 22084502 (Version 1)
Quarter: 2023Q1

REPORT INFORMATION
  Report Type: Spontaneous
  Country: US (occurrence: None)
  Receive Date: 20230310
  Receipt Date: 20230310
  Transmission Date: 20230418
  Serious: No
  Sender: FDA-Public Use
  Company Number: 2023A048358

PATIENT
  Age: 58 Year
  Sex: Male
  Weight: 104.3 kg

DRUGS (1)
  1. BYDUREON BCISE [Suspect]
     Active Substance: EXENATIDE
     Indication: Diabetes mellitus
     Route: 058
     Dates: start: 20230216

REACTIONS (6)
  - Contusion [Unknown]
  - Haemorrhage [Unknown]
  - Abdominal discomfort [Unknown]
  - Device defective [Unknown]
  - Incorrect dose administered by device [Unknown]
  - Device ineffective [Unknown]

NARRATIVE: CASE EVENT DATE: 20230216
